FAERS Safety Report 8243357-6 (Version None)
Quarter: 2012Q1

REPORT INFORMATION
  Report Type: 
  Country: None (occurrence: None)
  Receive Date: 20120329
  Receipt Date: 20120319
  Transmission Date: 20120608
  Serious: Yes (Hospitalization)
  Sender: FDA-Public Use
  Company Number: CL-SANOFI-AVENTIS-2010SA057833

PATIENT
  Age: 64 Year
  Sex: Male
  Weight: 91 kg

DRUGS (11)
  1. PLACEBO [Suspect]
     Route: 042
     Dates: start: 20100728, end: 20100728
  2. DOCETAXEL [Suspect]
     Route: 042
     Dates: start: 20100728, end: 20100728
  3. PREDNISONE TAB [Suspect]
     Indication: PROSTATE CANCER METASTATIC
     Dates: start: 20100113, end: 20100806
  4. ENALAPRIL [Concomitant]
     Dates: start: 20050101
  5. LUPRON [Concomitant]
  6. ASPIRIN [Concomitant]
     Dates: start: 20050101
  7. DEXAMETHASONE [Concomitant]
     Dates: start: 20100616, end: 20100728
  8. HYDROCHLOROTHIAZIDE [Concomitant]
     Dates: start: 20050101
  9. ONDANSETRON [Concomitant]
     Dates: start: 20100616, end: 20100728
  10. PLACEBO [Suspect]
     Indication: PROSTATE CANCER METASTATIC
     Route: 042
     Dates: start: 20100113, end: 20100113
  11. DOCETAXEL [Suspect]
     Indication: PROSTATE CANCER METASTATIC
     Route: 042
     Dates: start: 20100113, end: 20100113

REACTIONS (1)
  - CEREBRAL ISCHAEMIA [None]
